FAERS Safety Report 12415603 (Version 1)
Quarter: 2016Q2

REPORT INFORMATION
  Report Type: Spontaneous
  Country: GB (occurrence: GB)
  Receive Date: 20160530
  Receipt Date: 20160530
  Transmission Date: 20160815
  Serious: Yes (Other)
  Sender: FDA-Public Use
  Company Number: GB-ROCHE-1539841

PATIENT
  Sex: Female

DRUGS (1)
  1. HERCEPTIN [Suspect]
     Active Substance: TRASTUZUMAB
     Indication: PRODUCT USED FOR UNKNOWN INDICATION
     Dosage: RECEIVED CYCLE 14
     Route: 058

REACTIONS (6)
  - Dyspnoea [Not Recovered/Not Resolved]
  - Seasonal allergy [Unknown]
  - Asthenia [Not Recovered/Not Resolved]
  - Metastases to lung [Unknown]
  - Lymphoedema [Recovering/Resolving]
  - Pruritus [Unknown]
